FAERS Safety Report 4399990-5 (Version None)
Quarter: 2004Q3

REPORT INFORMATION
  Report Type: 
  Country: None (occurrence: None)
  Receive Date: 20040714
  Receipt Date: 20040701
  Transmission Date: 20050211
  Serious: Yes (Hospitalization)
  Sender: FDA-Public Use
  Company Number: ZANA001322

PATIENT
  Age: 59 Year
  Sex: Male

DRUGS (3)
  1. TIZANIDINE HCL [Suspect]
     Indication: PAIN IN EXTREMITY
     Dosage: ORAL
     Route: 048
     Dates: start: 20021108, end: 20021227
  2. TEGRETOL [Suspect]
     Indication: SPINAL CORD INJURY
     Dosage: ORAL
     Route: 048
     Dates: start: 20021108, end: 20021219
  3. LOXONIN (LOXOPROFEN SODIUM) [Concomitant]

REACTIONS (12)
  - C-REACTIVE PROTEIN INCREASED [None]
  - ERYTHEMA MULTIFORME [None]
  - HEPATIC FUNCTION ABNORMAL [None]
  - HUMAN HERPES VIRUS 6 SEROLOGY POSITIVE [None]
  - HYPERSENSITIVITY [None]
  - INTERLEUKIN LEVEL INCREASED [None]
  - LEUKOCYTOSIS [None]
  - LYMPHOCYTE STIMULATION TEST POSITIVE [None]
  - PYREXIA [None]
  - SKIN TEST POSITIVE [None]
  - THERAPY NON-RESPONDER [None]
  - WHITE BLOOD CELL COUNT INCREASED [None]
